FAERS Safety Report 23542987 (Version 2)
Quarter: 2024Q4

REPORT INFORMATION
  Report Type: Report from Study
  Country: US (occurrence: US)
  Receive Date: 20240220
  Receipt Date: 20241009
  Transmission Date: 20250114
  Serious: No
  Sender: IPSEN
  Company Number: US-Ipsen Biopharmaceuticals, Inc.-2024-02709

PATIENT
  Age: 27 Year
  Sex: Male

DRUGS (2)
  1. SOHONOS [Suspect]
     Active Substance: PALOVAROTENE
     Indication: Fibrodysplasia ossificans progressiva
     Dosage: CHRONIC DOSE
     Route: 048
     Dates: start: 202312
  2. SOHONOS [Suspect]
     Active Substance: PALOVAROTENE
     Dosage: FLARE DOSE
     Route: 048
     Dates: start: 20240926

REACTIONS (2)
  - Condition aggravated [Unknown]
  - Condition aggravated [Not Recovered/Not Resolved]

NARRATIVE: CASE EVENT DATE: 20240926
